FAERS Safety Report 21479220 (Version 6)
Quarter: 2023Q2

REPORT INFORMATION
  Report Type: Report from Study
  Country: US (occurrence: US)
  Receive Date: 20221019
  Receipt Date: 20230411
  Transmission Date: 20230722
  Serious: No
  Sender: FDA-Public Use
  Company Number: US-NOVARTISTESTPH-NVSC2022US235356

PATIENT
  Sex: Female

DRUGS (1)
  1. COSENTYX [Suspect]
     Active Substance: SECUKINUMAB
     Indication: Psoriasis
     Dosage: 150 MG, QMO
     Route: 058

REACTIONS (11)
  - Headache [Unknown]
  - Depressed mood [Unknown]
  - Psoriasis [Unknown]
  - Skin exfoliation [Unknown]
  - Illness [Recovered/Resolved]
  - Pharyngitis streptococcal [Unknown]
  - Upper respiratory tract infection [Unknown]
  - Pyrexia [Unknown]
  - Cough [Unknown]
  - Nasal congestion [Unknown]
  - Influenza [Unknown]
